FAERS Safety Report 8397899-3 (Version None)
Quarter: 2012Q2

REPORT INFORMATION
  Report Type: 
  Country: None (occurrence: None)
  Receive Date: 20120531
  Receipt Date: 20120523
  Transmission Date: 20120825
  Serious: Yes (Other)
  Sender: FDA-Public Use
  Company Number: BR-SANOFI-AVENTIS-2011SA065681

PATIENT
  Age: 71 Year
  Sex: Male
  Weight: 58 kg

DRUGS (4)
  1. AUTOPEN 24 [Suspect]
     Indication: DEVICE THERAPY
  2. GLYBURIDE [Concomitant]
     Indication: TYPE 2 DIABETES MELLITUS
     Route: 048
     Dates: start: 20110901
  3. CAPTOPRIL [Concomitant]
     Indication: HYPERTENSION
     Route: 048
  4. LANTUS [Suspect]
     Indication: TYPE 2 DIABETES MELLITUS
     Route: 058
     Dates: start: 20090101

REACTIONS (8)
  - URINARY TRACT INFECTION [None]
  - SWELLING [None]
  - BLINDNESS [None]
  - HYPERGLYCAEMIA [None]
  - HYPOGLYCAEMIA [None]
  - PARKINSON'S DISEASE [None]
  - PROSTATIC DISORDER [None]
  - HYPERTENSION [None]
